FAERS Safety Report 25173382 (Version 3)
Quarter: 2025Q3

REPORT INFORMATION
  Report Type: Spontaneous
  Country: US (occurrence: US)
  Receive Date: 20250408
  Receipt Date: 20250918
  Transmission Date: 20251021
  Serious: Yes (Hospitalization)
  Sender: PFIZER
  Company Number: US-PFIZER INC-PV202500040498

PATIENT
  Age: 79 Year
  Sex: Female
  Weight: 50.34 kg

DRUGS (1)
  1. IBRANCE [Suspect]
     Active Substance: PALBOCICLIB
     Indication: Breast cancer female
     Dosage: 125 MG, DAILY
     Route: 048
     Dates: start: 20250228

REACTIONS (4)
  - Full blood count decreased [Unknown]
  - Quality of life decreased [Unknown]
  - Loss of personal independence in daily activities [Unknown]
  - Depression [Unknown]

NARRATIVE: CASE EVENT DATE: 20250904
